FAERS Safety Report 5080692-7 (Version None)
Quarter: 2006Q3

REPORT INFORMATION
  Report Type: 
  Country: None (occurrence: None)
  Receive Date: 20060720
  Receipt Date: 20050822
  Transmission Date: 20061208
  Serious: Yes (Other)
  Sender: FDA-Public Use
  Company Number: 2005118506

PATIENT
  Age: 45 Year
  Sex: Male
  Weight: 79.8331 kg

DRUGS (3)
  1. CELEBREX [Suspect]
     Indication: BACK INJURY
     Dosage: ORAL
     Route: 048
     Dates: start: 20010101
  2. HYDROCODONE BITARTRATE + ACETAMINOPHEN [Concomitant]
  3. LORAZEPAM [Concomitant]

REACTIONS (3)
  - HYPERTENSION [None]
  - INTERVERTEBRAL DISC PROTRUSION [None]
  - TRANSIENT ISCHAEMIC ATTACK [None]
